FAERS Safety Report 6088626-3 (Version None)
Quarter: 2009Q1

REPORT INFORMATION
  Report Type: 
  Country: None (occurrence: None)
  Receive Date: 20090218
  Receipt Date: 20090218
  Transmission Date: 20090719
  Serious: Yes (Death)
  Sender: FDA-Public Use
  Company Number: None

PATIENT
  Age: 23 Year
  Sex: Male

DRUGS (2)
  1. PROPOFOL [Suspect]
     Indication: CONVULSION
     Dosage: TITRATE DRIP IV
     Route: 041
     Dates: start: 20080825, end: 20080828
  2. PROPOFOL [Suspect]
     Indication: SEDATION
     Dosage: TITRATE DRIP IV
     Route: 041
     Dates: start: 20080825, end: 20080828

REACTIONS (1)
  - PROPOFOL INFUSION SYNDROME [None]
